FAERS Safety Report 4412298-4 (Version None)
Quarter: 2004Q3

REPORT INFORMATION
  Report Type: 
  Country: None (occurrence: None)
  Receive Date: 20040727
  Receipt Date: 20040713
  Transmission Date: 20050211
  Serious: Yes (Death, Hospitalization)
  Sender: FDA-Public Use
  Company Number: NSADSS2002002091

PATIENT
  Age: 63 Year
  Sex: Female
  Weight: 39.0093 kg

DRUGS (8)
  1. REMICADE [Suspect]
     Indication: CROHN'S DISEASE
     Dosage: INTRAVENOUS DRIP
     Route: 041
     Dates: start: 20000815
  2. PREDNISONE [Suspect]
     Indication: DRUG USE FOR UNKNOWN INDICATION
  3. PENTASA [Concomitant]
  4. VALIUM [Concomitant]
  5. LOMOTIL [Concomitant]
  6. ZANTAC [Concomitant]
  7. PENTANYL (FENTANYL) [Concomitant]
  8. ACETAMINOPHEN/CODIENE (GALENIC; PARACETAMOL; CODEINE;) [Concomitant]

REACTIONS (26)
  - ABSCESS [None]
  - AGITATION [None]
  - ATELECTASIS [None]
  - BEDRIDDEN [None]
  - BRAIN STEM HAEMORRHAGE [None]
  - CANDIDIASIS [None]
  - CELLULITIS [None]
  - CHEST PAIN [None]
  - CONFUSIONAL STATE [None]
  - CROHN'S DISEASE [None]
  - DEHYDRATION [None]
  - DIARRHOEA [None]
  - DISORIENTATION [None]
  - HYPERTENSION [None]
  - LOCALISED INFECTION [None]
  - MALNUTRITION [None]
  - MEDICATION ERROR [None]
  - PNEUMONIA [None]
  - SERRATIA INFECTION [None]
  - SKIN LESION [None]
  - SKIN NECROSIS [None]
  - STOOL ANALYSIS ABNORMAL [None]
  - TUBERCULOSIS [None]
  - URTICARIA [None]
  - WEIGHT DECREASED [None]
  - WHITE BLOOD CELL COUNT INCREASED [None]
